FAERS Safety Report 25098442 (Version 2)
Quarter: 2025Q1

REPORT INFORMATION
  Report Type: Spontaneous
  Country: US (occurrence: US)
  Receive Date: 20250320
  Receipt Date: 20250325
  Transmission Date: 20250408
  Serious: Yes (Other)
  Sender: SANOFI AVENTIS
  Company Number: US-SA-2025SA079542

PATIENT
  Sex: Female

DRUGS (1)
  1. DUPIXENT [Suspect]
     Active Substance: DUPILUMAB

REACTIONS (6)
  - Syncope [Unknown]
  - Presyncope [Unknown]
  - Injection site swelling [Unknown]
  - Injection site pain [Unknown]
  - Poor quality product administered [Unknown]
  - Product storage error [Unknown]
